FAERS Safety Report 15953250 (Version 2)
Quarter: 2019Q1

REPORT INFORMATION
  Report Type: Spontaneous
  Country: US (occurrence: US)
  Receive Date: 20190212
  Receipt Date: 20190215
  Transmission Date: 20190417
  Serious: No
  Sender: FDA-Public Use
  Company Number: US-ELI_LILLY_AND_COMPANY-US201902004320

PATIENT
  Sex: Male

DRUGS (2)
  1. HUMALOG KWIKPEN [Suspect]
     Active Substance: INSULIN LISPRO
     Indication: PRODUCT USED FOR UNKNOWN INDICATION
     Dosage: 12 U, TID (+ SLIDING SCALE)
     Route: 058
  2. HUMALOG KWIKPEN [Suspect]
     Active Substance: INSULIN LISPRO
     Dosage: 12 U, TID (+ SLIDING SCALE)
     Route: 058

REACTIONS (3)
  - Visual impairment [Not Recovered/Not Resolved]
  - Feeling abnormal [Recovered/Resolved]
  - Blood glucose increased [Recovered/Resolved]
